FAERS Safety Report 8135040-2 (Version None)
Quarter: 2012Q1

REPORT INFORMATION
  Report Type: 
  Country: None (occurrence: None)
  Receive Date: 20120103
  Receipt Date: 20111113
  Transmission Date: 20120608
  Serious: No
  Sender: FDA-Public Use
  Company Number: AE-2011-003431

PATIENT
  Age: 62 Year
  Sex: Male
  Weight: 68.0396 kg

DRUGS (4)
  1. INCIVEK [Suspect]
     Dosage: 2250 MG (750 MG, 3 IN 1 D), ORAL
     Route: 048
     Dates: start: 20110902
  2. PEGASYS [Concomitant]
  3. COPEGUS [Concomitant]
  4. ACYCLOVIR [Concomitant]

REACTIONS (6)
  - AMMONIA INCREASED [None]
  - NASOPHARYNGITIS [None]
  - VISION BLURRED [None]
  - HEPATOMEGALY [None]
  - INSOMNIA [None]
  - DIZZINESS [None]
